FAERS Safety Report 4840108-X (Version None)
Quarter: 2005Q4

REPORT INFORMATION
  Report Type: 
  Country: None (occurrence: None)
  Receive Date: 20051125
  Receipt Date: 20051114
  Transmission Date: 20060501
  Serious: Yes (Other)
  Sender: FDA-Public Use
  Company Number: DSA_70855_2005

PATIENT
  Age: 22 Year
  Sex: Female
  Weight: 51.7101 kg

DRUGS (3)
  1. DARVOCET-N 100 [Suspect]
     Indication: PAIN IN EXTREMITY
     Dosage: 1 TAB Q4HR PO
     Route: 048
     Dates: start: 20050919
  2. ORTHO EVRA [Suspect]
     Indication: CONTRACEPTION
     Dosage: 1 PATCH QDAY TD
     Route: 062
     Dates: start: 20050918
  3. MISOPROSTOL [Suspect]
     Indication: UTERINE HAEMORRHAGE
     Dosage: 100 MCG TID PO
     Route: 048
     Dates: start: 20050920, end: 20050921

REACTIONS (8)
  - ABASIA [None]
  - ANAEMIA [None]
  - BLOOD PRESSURE SYSTOLIC DECREASED [None]
  - CONDITION AGGRAVATED [None]
  - EYE IRRITATION [None]
  - GAIT DISTURBANCE [None]
  - SEDATION [None]
  - UTERINE HAEMORRHAGE [None]
